FAERS Safety Report 5873268-2 (Version None)
Quarter: 2008Q3

REPORT INFORMATION
  Report Type: 
  Country: None (occurrence: None)
  Receive Date: 20080908
  Receipt Date: 20080829
  Transmission Date: 20090109
  Serious: Yes (Death, Life-Threatening)
  Sender: FDA-Public Use
  Company Number: GB-BAXTER-2008BH009185

PATIENT
  Age: 14 Year
  Sex: Female

DRUGS (11)
  1. FLUCONAZOLE [Suspect]
     Indication: DRUG USE FOR UNKNOWN INDICATION
     Route: 065
  2. RETINOIC ACID [Suspect]
     Indication: ACUTE PROMYELOCYTIC LEUKAEMIA
     Route: 065
  3. RETINOIC ACID [Suspect]
     Route: 065
  4. CEFEPIME [Concomitant]
     Indication: PNEUMONIA
  5. AMIKACIN [Concomitant]
     Indication: PNEUMONIA
  6. MEROPENEM [Concomitant]
  7. IDARUBICIN HCL [Concomitant]
     Indication: ACUTE PROMYELOCYTIC LEUKAEMIA
     Route: 042
  8. CYTARABINE [Concomitant]
     Indication: ACUTE PROMYELOCYTIC LEUKAEMIA
  9. MITOXANTRONE [Concomitant]
     Indication: ACUTE PROMYELOCYTIC LEUKAEMIA
  10. ETOPOSIDE [Concomitant]
     Indication: ACUTE PROMYELOCYTIC LEUKAEMIA
  11. THIOGUANINE [Concomitant]
     Indication: ACUTE PROMYELOCYTIC LEUKAEMIA

REACTIONS (9)
  - ANURIA [None]
  - CONJUNCTIVITIS [None]
  - DRUG INTERACTION [None]
  - FEBRILE NEUTROPENIA [None]
  - HAEMATURIA [None]
  - PYREXIA [None]
  - RASH MACULO-PAPULAR [None]
  - RENAL FAILURE ACUTE [None]
  - SEPSIS [None]
